FAERS Safety Report 10794831 (Version 1)
Quarter: 2015Q1

REPORT INFORMATION
  Report Type: Spontaneous
  Country: US (occurrence: US)
  Receive Date: 20150213
  Receipt Date: 20150213
  Transmission Date: 20150721
  Serious: No
  Sender: FDA-Public Use
  Company Number: US-GLAXOSMITHKLINE-US2015016082

PATIENT
  Age: 58 Year
  Sex: Male

DRUGS (1)
  1. NICODERM CQ [Suspect]
     Active Substance: NICOTINE
     Dosage: 21 MG, UNK
     Route: 062
     Dates: start: 201501, end: 201501

REACTIONS (3)
  - Application site pruritus [Unknown]
  - Application site dryness [Unknown]
  - Application site rash [Unknown]
